FAERS Safety Report 15738642 (Version 1)
Quarter: 2018Q4

REPORT INFORMATION
  Report Type: Spontaneous
  Country: US (occurrence: US)
  Receive Date: 20181219
  Receipt Date: 20181219
  Transmission Date: 20190205
  Serious: Yes (Hospitalization)
  Sender: FDA-Public Use
  Company Number: US-PFIZER INC-2018518076

PATIENT
  Age: 69 Year
  Sex: Female
  Weight: 52.16 kg

DRUGS (1)
  1. IBRANCE [Suspect]
     Active Substance: PALBOCICLIB
     Indication: NEOPLASM MALIGNANT
     Dosage: 100 MG, CYCLIC (ONCE A DAY BY MOUTH FOR 21 DAYS THEN OFF FOR 7 DAYS)
     Route: 048
     Dates: start: 20181115, end: 20181123

REACTIONS (2)
  - Wound [Not Recovered/Not Resolved]
  - Infection [Recovered/Resolved]

NARRATIVE: CASE EVENT DATE: 201811
